FAERS Safety Report 6440401-3 (Version None)
Quarter: 2009Q4

REPORT INFORMATION
  Report Type: 
  Country: None (occurrence: None)
  Receive Date: 20091113
  Receipt Date: 20091105
  Transmission Date: 20100525
  Serious: Yes (Hospitalization, Other)
  Sender: FDA-Public Use
  Company Number: PHHO2009GB12028

PATIENT
  Sex: Male
  Weight: 75 kg

DRUGS (13)
  1. RAD 666 RAD+TAB+PTR [Suspect]
     Indication: HEART TRANSPLANT
     Dosage: 3 MG/DAY
     Route: 048
     Dates: start: 20071127
  2. NEORAL [Suspect]
     Indication: HEART TRANSPLANT
     Dosage: 25 MG, BID
     Route: 048
     Dates: start: 20071127
  3. ATORVASTATIN [Concomitant]
  4. ALENDRONIC ACID [Concomitant]
  5. ADCAL [Concomitant]
  6. IRBESARTAN [Concomitant]
  7. ASPIRIN [Concomitant]
  8. LANSOPRAZOLE [Concomitant]
  9. PARACETAMOL [Concomitant]
  10. FUROSEMIDE [Concomitant]
  11. TEMAZEPAM [Concomitant]
  12. QUININE SULPHATE [Concomitant]
  13. ACYCLOVIR [Concomitant]

REACTIONS (2)
  - HEART TRANSPLANT REJECTION [None]
  - LEFT VENTRICULAR DYSFUNCTION [None]
